FAERS Safety Report 20626213 (Version 1)
Quarter: 2022Q1

REPORT INFORMATION
  Report Type: Spontaneous
  Country: CA (occurrence: CA)
  Receive Date: 20220323
  Receipt Date: 20220323
  Transmission Date: 20220423
  Serious: Yes (Life-Threatening, Other)
  Sender: FDA-Public Use
  Company Number: CA-SA-SAC20220318000645

PATIENT
  Age: 72 Year
  Sex: Female

DRUGS (5)
  1. CLOPIDOGREL BISULFATE [Suspect]
     Active Substance: CLOPIDOGREL BISULFATE
  2. HEPARIN SODIUM [Suspect]
     Active Substance: HEPARIN SODIUM
  3. ASPIRIN [Suspect]
     Active Substance: ASPIRIN
  4. BRILINTA [Suspect]
     Active Substance: TICAGRELOR
  5. ELIQUIS [Suspect]
     Active Substance: APIXABAN

REACTIONS (1)
  - Cerebral haematoma [Recovered/Resolved with Sequelae]
